FAERS Safety Report 25587053 (Version 1)
Quarter: 2025Q3

REPORT INFORMATION
  Report Type: Spontaneous
  Country: US (occurrence: US)
  Receive Date: 20250721
  Receipt Date: 20250721
  Transmission Date: 20251021
  Serious: No
  Sender: Phathom Pharmaceuticals
  Company Number: US-PHATHOM PHARMACEUTICALS INC.-2025PHT00732

PATIENT
  Age: 58 Year
  Sex: Female

DRUGS (14)
  1. VOQUEZNA [Suspect]
     Active Substance: VONOPRAZAN FUMARATE
     Dosage: 10 MG, 1X/DAY
     Route: 048
     Dates: start: 20250315, end: 20250330
  2. IBSRELA [Concomitant]
     Active Substance: TENAPANOR HYDROCHLORIDE
  3. CENTRUM SILVER WOMEN [Concomitant]
  4. MONTELUKAST [Concomitant]
     Active Substance: MONTELUKAST
  5. LASMIDITAN [Concomitant]
     Active Substance: LASMIDITAN
  6. GRANISETRON HYDROCHLORIDE [Concomitant]
     Active Substance: GRANISETRON HYDROCHLORIDE
  7. VAGIFEM [Concomitant]
     Active Substance: ESTRADIOL
  8. DUPIXENT [Concomitant]
     Active Substance: DUPILUMAB
  9. DESONIDE [Concomitant]
     Active Substance: DESONIDE
  10. VITAMIN D3 [Concomitant]
     Active Substance: CHOLECALCIFEROL
  11. CETIRIZINE HYDROCHLORIDE [Concomitant]
     Active Substance: CETIRIZINE HYDROCHLORIDE
  12. BOTOX [Concomitant]
     Active Substance: ONABOTULINUMTOXINA
  13. AZELASTINE [Concomitant]
     Active Substance: AZELASTINE
  14. ACETAMINOPHEN PLUS EXTRA STR [Concomitant]

REACTIONS (5)
  - Sensory disturbance [Unknown]
  - Chest pain [Unknown]
  - Abdominal distension [Unknown]
  - Abdominal pain upper [Unknown]
  - Drug ineffective [Recovered/Resolved]

NARRATIVE: CASE EVENT DATE: 20250301
